FAERS Safety Report 19621716 (Version 2)
Quarter: 2021Q3

REPORT INFORMATION
  Report Type: Report from Study
  Country: US (occurrence: US)
  Receive Date: 20210728
  Receipt Date: 20210809
  Transmission Date: 20211014
  Serious: Yes (Death, Other)
  Sender: FDA-Public Use
  Company Number: NVSC2021US168684

PATIENT
  Age: 63 Year
  Sex: Female

DRUGS (1)
  1. GILENYA [Suspect]
     Active Substance: FINGOLIMOD HYDROCHLORIDE
     Indication: RELAPSING-REMITTING MULTIPLE SCLEROSIS
     Dosage: 0.5 MG, QD
     Route: 048
     Dates: start: 20110312

REACTIONS (12)
  - Sepsis [Fatal]
  - Dyspepsia [Fatal]
  - Acute kidney injury [Fatal]
  - Metabolic encephalopathy [Fatal]
  - Lactic acidosis [Fatal]
  - Depression [Fatal]
  - Death [Fatal]
  - Urinary tract infection [Fatal]
  - Troponin increased [Fatal]
  - Essential hypertension [Fatal]
  - Anaemia [Fatal]
  - Hyperlipidaemia [Fatal]

NARRATIVE: CASE EVENT DATE: 20210722
